FAERS Safety Report 4490588-7 (Version None)
Quarter: 2004Q4

REPORT INFORMATION
  Report Type: 
  Country: None (occurrence: None)
  Receive Date: 20041102
  Receipt Date: 20041014
  Transmission Date: 20050328
  Serious: Yes (Other)
  Sender: FDA-Public Use
  Company Number: US-MERCK-0410USA02235

PATIENT
  Sex: Female

DRUGS (6)
  1. VIOXX [Suspect]
     Indication: POLYMYOSITIS
     Route: 048
     Dates: start: 19990101
  2. EFFEXOR [Concomitant]
     Route: 065
  3. [THERAPY UNSPECIFIED] [Concomitant]
     Route: 065
  4. ATENOLOL [Concomitant]
     Route: 065
  5. [THERAPY UNSPECIFIED] [Concomitant]
     Route: 065
  6. OXYCODONE [Concomitant]
     Indication: DENTAL TREATMENT
     Route: 065

REACTIONS (5)
  - CLOSED HEAD INJURY [None]
  - FALL [None]
  - LOSS OF CONSCIOUSNESS [None]
  - POST CONCUSSION SYNDROME [None]
  - SYNCOPE [None]
